FAERS Safety Report 4893238-0 (Version None)
Quarter: 2006Q1

REPORT INFORMATION
  Report Type: 
  Country: None (occurrence: None)
  Receive Date: 20060124
  Receipt Date: 20060118
  Transmission Date: 20060701
  Serious: Yes (Life-Threatening, Hospitalization)
  Sender: FDA-Public Use
  Company Number: FABR-11358

PATIENT
  Age: 52 Year
  Sex: Male
  Weight: 74.3899 kg

DRUGS (5)
  1. FABRAZYME [Suspect]
     Indication: FABRY'S DISEASE
     Dosage: 70 MG Q2WKS IV
     Route: 042
     Dates: start: 20010101
  2. WELLBUTRIN [Concomitant]
  3. FOSINOPRIL SODIUM [Concomitant]
  4. AMITRIPTYLINE HCL [Concomitant]
  5. PULMICORT [Concomitant]

REACTIONS (2)
  - ATRIAL FIBRILLATION [None]
  - CARDIAC ARREST [None]
